FAERS Safety Report 11785415 (Version 1)
Quarter: 2015Q4

REPORT INFORMATION
  Report Type: Spontaneous
  Country: US (occurrence: US)
  Receive Date: 20151130
  Receipt Date: 20151130
  Transmission Date: 20160305
  Serious: No
  Sender: FDA-Public Use
  Company Number: US-JNJFOC-20151102538

PATIENT
  Age: 82 Year
  Sex: Female
  Weight: 73.03 kg

DRUGS (1)
  1. TYLENOL EXTRA STRENGTH [Suspect]
     Active Substance: ACETAMINOPHEN
     Indication: BACK PAIN
     Route: 048

REACTIONS (4)
  - Incorrect dose administered [Not Recovered/Not Resolved]
  - Dizziness [Not Recovered/Not Resolved]
  - Product packaging issue [Unknown]
  - Vision blurred [Not Recovered/Not Resolved]
